FAERS Safety Report 12613750 (Version 1)
Quarter: 2016Q3

REPORT INFORMATION
  Report Type: Spontaneous
  Country: US (occurrence: None)
  Receive Date: 20160801
  Receipt Date: 20160801
  Transmission Date: 20161109
  Serious: Yes (Other)
  Sender: FDA-Public Use
  Company Number: None

PATIENT
  Age: 35 Year
  Sex: Female
  Weight: 81.65 kg

DRUGS (1)
  1. ENTYVIO [Suspect]
     Active Substance: VEDOLIZUMAB
     Indication: CROHN^S DISEASE
     Dosage: LOADING DOSE, 2 WE INTO A VEIN
     Route: 042
     Dates: start: 20160721

REACTIONS (6)
  - Headache [None]
  - Heart rate increased [None]
  - Hyperhidrosis [None]
  - Syncope [None]
  - Confusional state [None]
  - Arthralgia [None]

NARRATIVE: CASE EVENT DATE: 20160729
